FAERS Safety Report 18164328 (Version 4)
Quarter: 2020Q4

REPORT INFORMATION
  Report Type: Spontaneous
  Country: US (occurrence: US)
  Receive Date: 20200818
  Receipt Date: 20201124
  Transmission Date: 20210113
  Serious: Yes (Other)
  Sender: FDA-Public Use
  Company Number: US-PFIZER INC-2020317990

PATIENT
  Age: 63 Year
  Sex: Female
  Weight: 78.93 kg

DRUGS (3)
  1. CHANTIX [Suspect]
     Active Substance: VARENICLINE TARTRATE
     Indication: CHRONIC OBSTRUCTIVE PULMONARY DISEASE
  2. CHANTIX [Suspect]
     Active Substance: VARENICLINE TARTRATE
     Indication: CARDIAC FAILURE CONGESTIVE
     Dosage: 1 MG, 2X/DAY (QUANTITY 56, IN 4 CONTINUOUS 1MG PACK)
     Route: 048
  3. CHANTIX [Suspect]
     Active Substance: VARENICLINE TARTRATE
     Indication: SMOKING CESSATION THERAPY

REACTIONS (7)
  - Weight decreased [Unknown]
  - Bone density decreased [Unknown]
  - Abdominal discomfort [Unknown]
  - Rectal haemorrhage [Unknown]
  - Drug ineffective [Not Recovered/Not Resolved]
  - Diverticulum intestinal haemorrhagic [Unknown]
  - Polyp [Unknown]

NARRATIVE: CASE EVENT DATE: 202001
